FAERS Safety Report 12770520 (Version 2)
Quarter: 2016Q4

REPORT INFORMATION
  Report Type: Spontaneous
  Country: FR (occurrence: FR)
  Receive Date: 20160922
  Receipt Date: 20161219
  Transmission Date: 20170207
  Serious: Yes (Other)
  Sender: FDA-Public Use
  Company Number: PHHY2016FR129000

PATIENT
  Age: 60 Year
  Sex: Female
  Weight: 60 kg

DRUGS (1)
  1. LAMISIL [Suspect]
     Active Substance: TERBINAFINE HYDROCHLORIDE
     Indication: ONYCHOMYCOSIS
     Dosage: UNK UNK, QD
     Route: 048
     Dates: start: 20160502, end: 20160607

REACTIONS (7)
  - Movement disorder [Unknown]
  - Dysgeusia [Recovered/Resolved]
  - Alopecia [Recovered/Resolved]
  - Depression [Recovering/Resolving]
  - Arthralgia [Recovered/Resolved]
  - Ageusia [Recovered/Resolved]
  - Weight decreased [Unknown]

NARRATIVE: CASE EVENT DATE: 20160517
